FAERS Safety Report 7208885-0 (Version None)
Quarter: 2011Q1

REPORT INFORMATION
  Report Type: 
  Country: None (occurrence: None)
  Receive Date: 20110104
  Receipt Date: 20101227
  Transmission Date: 20110831
  Serious: Yes (Hospitalization)
  Sender: FDA-Public Use
  Company Number: PHHO2010BR19679

PATIENT
  Sex: Female
  Weight: 46.4 kg

DRUGS (6)
  1. PREDNISONE [Concomitant]
     Indication: RENAL TRANSPLANT
  2. TACROLIMUS [Suspect]
     Indication: RENAL TRANSPLANT
     Dosage: 6 MG, BID
     Route: 048
     Dates: start: 20100923
  3. MYFORTIC [Suspect]
     Indication: RENAL TRANSPLANT
     Dosage: 720 MG, BID
     Route: 048
     Dates: start: 20100923
  4. OMEPRAZOLE [Concomitant]
     Indication: PROPHYLAXIS
  5. BACTRIM [Concomitant]
     Indication: PROPHYLAXIS
  6. ATENOLOL [Concomitant]
     Indication: HYPERTENSION

REACTIONS (3)
  - DIARRHOEA [None]
  - DEHYDRATION [None]
  - COMPLICATIONS OF TRANSPLANTED KIDNEY [None]
